FAERS Safety Report 4539341-6 (Version None)
Quarter: 2004Q4

REPORT INFORMATION
  Report Type: 
  Country: None (occurrence: None)
  Receive Date: 20041222
  Receipt Date: 20041208
  Transmission Date: 20050328
  Serious: Yes (Other)
  Sender: FDA-Public Use
  Company Number: 2004111433

PATIENT
  Age: 49 Year
  Sex: Male

DRUGS (5)
  1. DOXORUBICIN HCL [Suspect]
     Indication: NON-HODGKIN'S LYMPHOMA
     Dosage: (CYCLICAL)
     Dates: start: 19971025, end: 19980513
  2. PREDNISOLONE [Suspect]
     Indication: NON-HODGKIN'S LYMPHOMA
     Dosage: (CYCLICAL)
     Dates: start: 19971025, end: 19980513
  3. VINCRISTINE [Suspect]
     Indication: NON-HODGKIN'S LYMPHOMA
     Dosage: (CYCLICAL)
     Dates: start: 19971025, end: 19980513
  4. CYCLOPHOSPHAMIDE [Suspect]
     Indication: NON-HODGKIN'S LYMPHOMA
     Dosage: (CYCLICAL)
     Dates: start: 19971025, end: 19980513
  5. CLADRIBINE [Suspect]
     Indication: NON-HODGKIN'S LYMPHOMA
     Dosage: (3 CYCLES)
     Dates: start: 19980212, end: 19981208

REACTIONS (1)
  - MYELODYSPLASTIC SYNDROME [None]
